FAERS Safety Report 7404505-0 (Version None)
Quarter: 2011Q2

REPORT INFORMATION
  Report Type: 
  Country: None (occurrence: None)
  Receive Date: 20110408
  Receipt Date: 20101222
  Transmission Date: 20111010
  Serious: Yes (Other)
  Sender: FDA-Public Use
  Company Number: JP-PFIZER INC-2011077362

PATIENT
  Age: 57 Year
  Sex: Male

DRUGS (1)
  1. MIGLITOL [Suspect]
     Dosage: 150 MG, DAILY
     Route: 048
     Dates: start: 20100811, end: 20100901

REACTIONS (1)
  - LIVER DISORDER [None]
